FAERS Safety Report 17368132 (Version 8)
Quarter: 2020Q3

REPORT INFORMATION
  Report Type: Report from Study
  Country: FR (occurrence: FR)
  Receive Date: 20200204
  Receipt Date: 20200928
  Transmission Date: 20201102
  Serious: Yes (Other)
  Sender: FDA-Public Use
  Company Number: NVSC2020FR016881

PATIENT
  Age: 68 Year
  Sex: Male
  Weight: 62 kg

DRUGS (10)
  1. DABRAFENIB [Suspect]
     Active Substance: DABRAFENIB
     Indication: MALIGNANT MELANOMA
     Dosage: 150 MG, BID
     Route: 048
     Dates: start: 20190529, end: 20191231
  2. STERDEX [Concomitant]
     Active Substance: DEXAMETHASONE\OXYTETRACYCLINE
     Indication: UVEITIS
     Dosage: UNK
     Route: 065
     Dates: start: 20191224, end: 20191231
  3. ATROPINE. [Concomitant]
     Active Substance: ATROPINE
     Indication: UVEITIS
  4. CORTANCYL [Concomitant]
     Active Substance: PREDNISONE
     Indication: UVEITIS
  5. STERDEX [Concomitant]
     Active Substance: DEXAMETHASONE\OXYTETRACYCLINE
     Indication: UVEITIS
  6. DEXAFREE [Concomitant]
     Active Substance: DEXAMETHASONE SODIUM PHOSPHATE
     Indication: UVEITIS
     Dosage: UNK
     Route: 065
     Dates: start: 20191224, end: 20200227
  7. DEXAFREE [Concomitant]
     Active Substance: DEXAMETHASONE SODIUM PHOSPHATE
     Indication: UVEITIS
  8. ATROPINE. [Concomitant]
     Active Substance: ATROPINE
     Indication: UVEITIS
     Dosage: UNK
     Route: 065
     Dates: start: 20191224, end: 20191231
  9. CORTANCYL [Concomitant]
     Active Substance: PREDNISONE
     Indication: UVEITIS
     Dosage: UNK
     Route: 065
     Dates: start: 20200122, end: 20200326
  10. TRAMETINIB [Suspect]
     Active Substance: TRAMETINIB
     Indication: MALIGNANT MELANOMA
     Dosage: 2 MG, QD
     Route: 048
     Dates: start: 20190529, end: 20191231

REACTIONS (1)
  - Scleritis [Recovered/Resolved]

NARRATIVE: CASE EVENT DATE: 20191224
